FAERS Safety Report 24606564 (Version 1)
Quarter: 2024Q4

REPORT INFORMATION
  Report Type: Spontaneous
  Country: US (occurrence: US)
  Receive Date: 20241112
  Receipt Date: 20241112
  Transmission Date: 20250115
  Serious: Yes (Disabling, Other)
  Sender: SANOFI AVENTIS
  Company Number: US-SA-2024SA326150

PATIENT
  Sex: Female

DRUGS (18)
  1. AUBAGIO [Suspect]
     Active Substance: TERIFLUNOMIDE
     Indication: Multiple sclerosis
     Dosage: 14 MG
  2. AMPHETAMINE [Concomitant]
     Active Substance: AMPHETAMINE
  3. ARIPIPRAZOLE [Concomitant]
     Active Substance: ARIPIPRAZOLE
  4. BUSPIRONE [Concomitant]
     Active Substance: BUSPIRONE HYDROCHLORIDE
  5. DEXAMETHASONE [Concomitant]
     Active Substance: DEXAMETHASONE
  6. DOXYCYCLINE [Concomitant]
     Active Substance: DOXYCYCLINE
  7. GABAPENTIN [Concomitant]
     Active Substance: GABAPENTIN
  8. GENTAMICIN [Concomitant]
     Active Substance: GENTAMICIN
  9. KETOROLAC [Concomitant]
     Active Substance: KETOROLAC TROMETHAMINE
  10. OMEPRAZOLE [Concomitant]
     Active Substance: OMEPRAZOLE
  11. PREGABALIN [Concomitant]
     Active Substance: PREGABALIN
  12. PROPRANOLOL [Concomitant]
     Active Substance: PROPRANOLOL HYDROCHLORIDE
  13. QULIPTA [Concomitant]
     Active Substance: ATOGEPANT
  14. RIZATRIPTAN [Concomitant]
     Active Substance: RIZATRIPTAN
  15. TIROSINT [Concomitant]
     Active Substance: LEVOTHYROXINE SODIUM
  16. TIROSINT [Concomitant]
     Active Substance: LEVOTHYROXINE SODIUM
  17. TOPIRAMATE [Concomitant]
     Active Substance: TOPIRAMATE
  18. TRINTELLIX [Concomitant]
     Active Substance: VORTIOXETINE HYDROBROMIDE

REACTIONS (19)
  - Loss of personal independence in daily activities [Unknown]
  - Narcolepsy [Unknown]
  - Gait disturbance [Unknown]
  - Tremor [Unknown]
  - Eye movement disorder [Unknown]
  - Aphasia [Unknown]
  - Pain [Unknown]
  - Hypoaesthesia [Unknown]
  - Urinary incontinence [Unknown]
  - Memory impairment [Unknown]
  - Disturbance in attention [Unknown]
  - Balance disorder [Unknown]
  - Depression [Unknown]
  - Initial insomnia [Unknown]
  - Fatigue [Unknown]
  - Decreased appetite [Unknown]
  - Restlessness [Unknown]
  - Reading disorder [Unknown]
  - Paraesthesia [Unknown]
